FAERS Safety Report 9061959 (Version 2)
Quarter: 2013Q1

REPORT INFORMATION
  Report Type: Spontaneous
  Country: US (occurrence: US)
  Receive Date: 20130128
  Receipt Date: 20130227
  Transmission Date: 20140127
  Serious: Yes (Hospitalization, Other)
  Sender: FDA-Public Use
  Company Number: US-BAYER-2012-111248

PATIENT
  Age: 16 Year
  Sex: Female
  Weight: 120.18 kg

DRUGS (15)
  1. OCELLA [Suspect]
     Indication: CONTRACEPTION
     Dosage: UNK
     Dates: start: 200909, end: 201104
  2. DRUGS FOR OBSTRUCTIVE AIRWAY DISEASES [Concomitant]
     Indication: WHEEZING
     Dosage: 2 INHALATIONS EVERY 4 HOURS AS NEEDED
  3. NAPROXEN [Concomitant]
     Dosage: 375 MG, UNK
  4. PREDNISONE [Concomitant]
     Indication: ASTHMA
     Dosage: UNK
     Dates: start: 200706, end: 201108
  5. IBUPROFEN [Concomitant]
     Indication: MUSCLE SPASMS
  6. CYCLOBENZAPRINE [Concomitant]
     Indication: MUSCLE SPASMS
  7. FLEXERIL [Concomitant]
  8. VICODIN [Concomitant]
  9. LASIX [Concomitant]
  10. PLETAL [Concomitant]
  11. DOXYCYCLINE MONOHYDRATE [DOXYCYCLINE MONOHYDRATE] [Concomitant]
  12. TRAMADOL [Concomitant]
  13. IRON [Concomitant]
  14. OXYCODONE [Concomitant]
  15. DOCUSATE SODIUM [Concomitant]

REACTIONS (14)
  - Deep vein thrombosis [None]
  - Embolism arterial [None]
  - Gallbladder disorder [None]
  - Myocardial infarction [None]
  - Cerebrovascular accident [None]
  - Pulmonary embolism [None]
  - Injury [None]
  - Pain in extremity [None]
  - Pain [None]
  - Chest pain [None]
  - Anxiety [None]
  - Anhedonia [None]
  - Fear of disease [None]
  - Mental disorder [None]
